FAERS Safety Report 4769012-2 (Version None)
Quarter: 2005Q3

REPORT INFORMATION
  Report Type: 
  Country: None (occurrence: None)
  Receive Date: 20050915
  Receipt Date: 20050906
  Transmission Date: 20060218
  Serious: Yes (Hospitalization)
  Sender: FDA-Public Use
  Company Number: US-ABBOTT-05P-163-0310496-00

PATIENT
  Sex: Female
  Weight: 76.726 kg

DRUGS (8)
  1. HUMIRA [Suspect]
     Indication: RHEUMATOID ARTHRITIS
     Route: 058
     Dates: start: 20040301, end: 20040601
  2. HUMIRA [Suspect]
     Route: 058
     Dates: start: 20040701, end: 20040901
  3. HUMIRA [Suspect]
     Route: 058
     Dates: start: 20041201, end: 20050201
  4. FUROSEMIDE [Concomitant]
     Indication: FLUID RETENTION
     Route: 048
  5. HYDROXYCHLOROQUINE PHOSPHATE [Concomitant]
     Indication: RHEUMATOID ARTHRITIS
     Route: 048
  6. PROPRANOLOL HYDROCHLORIDE [Concomitant]
     Indication: VARICES OESOPHAGEAL
     Route: 048
  7. PARACETAMOL [Concomitant]
     Indication: RHEUMATOID ARTHRITIS
     Route: 048
  8. PARACETAMOL [Concomitant]
     Indication: PAIN

REACTIONS (4)
  - COUGH [None]
  - NASOPHARYNGITIS [None]
  - PNEUMONIA [None]
  - SKIN ULCER [None]
